FAERS Safety Report 7399769-6 (Version None)
Quarter: 2011Q2

REPORT INFORMATION
  Report Type: 
  Country: None (occurrence: None)
  Receive Date: 20110407
  Receipt Date: 20110324
  Transmission Date: 20111010
  Serious: Yes (Hospitalization)
  Sender: FDA-Public Use
  Company Number: JP-AMGEN-JPNSP2011017519

PATIENT
  Age: 78 Year
  Sex: Male

DRUGS (13)
  1. CINACALCET HCL - KHK [Suspect]
     Indication: HYPERPARATHYROIDISM SECONDARY
     Dosage: 50 MG, QD
     Route: 048
     Dates: start: 20090610
  2. ADALAT CC [Concomitant]
     Dosage: 20 MG, QD
     Route: 048
  3. EPOGIN [Concomitant]
     Dosage: 1500 IU, 3 TIMES/WK
     Route: 042
     Dates: start: 20090729
  4. NEO MINOPHAGEN C [Concomitant]
     Dosage: 3.6 IU, 3 TIMES/WK
     Route: 042
  5. NEUROTROPIN [Concomitant]
  6. CALTAN [Concomitant]
     Dosage: 2000 MG, QD
     Route: 048
  7. DEKASOFT [Concomitant]
     Dosage: 20 MG, QD
     Route: 048
  8. TAKEPRON [Concomitant]
     Dosage: 30 MG, QD
     Route: 048
  9. AMOBAN [Concomitant]
     Dosage: 7.5 MG, QD
     Route: 048
  10. PHOSBLOCK [Concomitant]
     Dosage: 750 MG, QD
     Route: 048
  11. OXAROL [Concomitant]
     Dosage: 2.5 A?G, 3 TIMES/WK
     Route: 042
  12. SIGMART [Concomitant]
     Dosage: 15 MG, QD
     Route: 048
  13. ZYLORIC [Concomitant]
     Dosage: 50 MG, QD
     Route: 048

REACTIONS (3)
  - LUMBAR SPINAL STENOSIS [None]
  - ANAEMIA [None]
  - GASTRIC ULCER [None]
